FAERS Safety Report 7686075-5 (Version None)
Quarter: 2011Q3

REPORT INFORMATION
  Report Type: 
  Country: None (occurrence: None)
  Receive Date: 20110816
  Receipt Date: 20110805
  Transmission Date: 20111222
  Serious: Yes (Other)
  Sender: FDA-Public Use
  Company Number: PHFR2011GB03635

PATIENT
  Sex: Female

DRUGS (4)
  1. CITALOPRAM HYDROBROMIDE [Concomitant]
     Indication: DEPRESSION
     Dosage: 40 MG/DAY
     Route: 048
  2. CLOZAPINE [Suspect]
     Indication: SCHIZOPHRENIA
     Dosage: 475 MG/DAY
     Route: 048
     Dates: start: 19990512
  3. CLOZAPINE [Suspect]
     Route: 048
  4. VALPROATE SODIUM [Concomitant]
     Indication: SCHIZOAFFECTIVE DISORDER
     Dosage: 400 MG/DAY
     Route: 048

REACTIONS (3)
  - PHARYNGITIS [None]
  - NEUTROPHIL COUNT DECREASED [None]
  - WHITE BLOOD CELL COUNT DECREASED [None]
